FAERS Safety Report 19986050 (Version 1)
Quarter: 2021Q4

REPORT INFORMATION
  Report Type: Spontaneous
  Country: US (occurrence: US)
  Receive Date: 20211022
  Receipt Date: 20211022
  Transmission Date: 20220303
  Serious: No
  Sender: FDA-Public Use
  Company Number: US-CELGENE-USA-20211004493

PATIENT
  Age: 50 Year
  Sex: Female
  Weight: 47.67 kg

DRUGS (1)
  1. ZEPOSIA [Suspect]
     Active Substance: OZANIMOD HYDROCHLORIDE
     Indication: Colitis ulcerative
     Dosage: .92 MILLIGRAM
     Route: 048
     Dates: start: 20210923

REACTIONS (3)
  - Gastroenteritis viral [Unknown]
  - Nasal congestion [Unknown]
  - Nausea [Unknown]

NARRATIVE: CASE EVENT DATE: 20210928
